FAERS Safety Report 4357767-0 (Version None)
Quarter: 2004Q2

REPORT INFORMATION
  Report Type: 
  Country: None (occurrence: None)
  Receive Date: 20040513
  Receipt Date: 20040504
  Transmission Date: 20050107
  Serious: Yes (Other)
  Sender: FDA-Public Use
  Company Number: US-BRISTOL-MYERS SQUIBB COMPANY-12578456

PATIENT
  Age: 59 Year
  Sex: Female

DRUGS (8)
  1. COUMADIN [Suspect]
     Indication: CEREBROVASCULAR ACCIDENT
     Dosage: ON 23-DEC-2003: STARTED WITH 5MG, ONE TABLET DAILY, TIMES 7 DAYS.
     Route: 048
     Dates: start: 20031223
  2. NORVASC [Concomitant]
  3. HYDROCHLOROTHIAZIDE [Concomitant]
  4. LIPITOR [Concomitant]
  5. LISINOPRIL [Concomitant]
  6. PREVACID [Concomitant]
  7. MIRALAX [Concomitant]
  8. PERCOCET [Concomitant]

REACTIONS (5)
  - ANTIPHOSPHOLIPID SYNDROME [None]
  - ECCHYMOSIS [None]
  - INTERNATIONAL NORMALISED RATIO DECREASED [None]
  - INTERNATIONAL NORMALISED RATIO INCREASED [None]
  - MOUTH HAEMORRHAGE [None]
